FAERS Safety Report 18973805 (Version 3)
Quarter: 2023Q2

REPORT INFORMATION
  Report Type: Spontaneous
  Country: US (occurrence: US)
  Receive Date: 20210305
  Receipt Date: 20230515
  Transmission Date: 20230721
  Serious: Yes (Other)
  Sender: FDA-Public Use
  Company Number: US-GILEAD-2021-0519079

PATIENT
  Age: 61 Year
  Sex: Male
  Weight: 116.1 kg

DRUGS (74)
  1. ATRIPLA [Suspect]
     Active Substance: EFAVIRENZ\EMTRICITABINE\TENOFOVIR DISOPROXIL FUMARATE
     Indication: HIV infection
     Dosage: UNK
     Route: 048
     Dates: start: 2006
  2. ATRIPLA [Suspect]
     Active Substance: EFAVIRENZ\EMTRICITABINE\TENOFOVIR DISOPROXIL FUMARATE
     Dosage: UNK
     Route: 048
     Dates: start: 200708
  3. VIREAD [Suspect]
     Active Substance: TENOFOVIR DISOPROXIL FUMARATE
     Indication: HIV infection
     Dosage: UNK
     Route: 048
     Dates: start: 2001, end: 2007
  4. CALCIUM\VITAMIN D [Concomitant]
     Active Substance: CALCIUM\VITAMIN D
  5. EPIVIR [Concomitant]
     Active Substance: LAMIVUDINE
  6. VIRAMUNE [Concomitant]
     Active Substance: NEVIRAPINE
  7. AMITRIPTYLINE [Concomitant]
     Active Substance: AMITRIPTYLINE
  8. ANORO ELLIPTA [Concomitant]
     Active Substance: UMECLIDINIUM BROMIDE\VILANTEROL TRIFENATATE
  9. AZO-CRANBERRY [Concomitant]
  10. BELBUCA [Concomitant]
     Active Substance: BUPRENORPHINE HYDROCHLORIDE
  11. BUPROPION [Concomitant]
     Active Substance: BUPROPION
  12. CALCIUM [Concomitant]
     Active Substance: CALCIUM
  13. CARBIDOPA\LEVODOPA [Concomitant]
     Active Substance: CARBIDOPA\LEVODOPA
  14. DIAZEPAM [Concomitant]
     Active Substance: DIAZEPAM
  15. DICLOFENAC [Concomitant]
     Active Substance: DICLOFENAC
  16. FAMOTIDINE [Concomitant]
     Active Substance: FAMOTIDINE
  17. FLUTICASONE [Concomitant]
     Active Substance: FLUTICASONE
  18. FOLIC ACID [Concomitant]
     Active Substance: FOLIC ACID
  19. GABAPENTIN [Concomitant]
     Active Substance: GABAPENTIN
  20. HYDROCHLOROTHIAZIDE [Concomitant]
     Active Substance: HYDROCHLOROTHIAZIDE
  21. HYDROCORTISONE [Concomitant]
     Active Substance: HYDROCORTISONE
  22. LACTULOSE [Concomitant]
     Active Substance: LACTULOSE
  23. LINZESS [Concomitant]
     Active Substance: LINACLOTIDE
  24. OXYCODONE [Concomitant]
     Active Substance: OXYCODONE
  25. PROMETHAZINE [Concomitant]
     Active Substance: PROMETHAZINE HYDROCHLORIDE
  26. QUETIAPINE [Concomitant]
     Active Substance: QUETIAPINE
  27. RANITIDINE [Concomitant]
     Active Substance: RANITIDINE
  28. RETROVIR [Concomitant]
     Active Substance: ZIDOVUDINE
  29. SUMATRIPTAN [Concomitant]
     Active Substance: SUMATRIPTAN
  30. TESTOSTERONE [Concomitant]
     Active Substance: TESTOSTERONE
  31. TIZANIDINE [Concomitant]
     Active Substance: TIZANIDINE
  32. TOVIAZ [Concomitant]
     Active Substance: FESOTERODINE FUMARATE
  33. VALACYCLOVIR [Concomitant]
     Active Substance: VALACYCLOVIR HYDROCHLORIDE
  34. VASCEPA [Concomitant]
     Active Substance: ICOSAPENT ETHYL
  35. VITAMIN D3 [Concomitant]
     Active Substance: CHOLECALCIFEROL
  36. XANAX [Concomitant]
     Active Substance: ALPRAZOLAM
  37. XYOSTED [Concomitant]
     Active Substance: TESTOSTERONE ENANTHATE
  38. ACETAMINOPHEN [Concomitant]
     Active Substance: ACETAMINOPHEN
  39. SENNA [Concomitant]
     Active Substance: SENNA LEAF\SENNOSIDES\SENNOSIDES A AND B
  40. MORPHINE [Concomitant]
     Active Substance: MORPHINE
  41. METHADONE [Concomitant]
     Active Substance: METHADONE HYDROCHLORIDE
  42. MORPHINE SULFATE [Concomitant]
     Active Substance: MORPHINE SULFATE
  43. OXYMORPHONE [Concomitant]
     Active Substance: OXYMORPHONE
  44. FENTANYL [Concomitant]
     Active Substance: FENTANYL
  45. ENDOCET [Concomitant]
     Active Substance: ACETAMINOPHEN\OXYCODONE HYDROCHLORIDE
  46. ACETAMINOPHEN\HYDROCODONE [Concomitant]
     Active Substance: ACETAMINOPHEN\HYDROCODONE
  47. ZOLPIDEM [Concomitant]
     Active Substance: ZOLPIDEM TARTRATE
  48. KETOROLAC [Concomitant]
     Active Substance: KETOROLAC TROMETHAMINE
  49. VITAMIN B12 [Concomitant]
     Active Substance: CYANOCOBALAMIN
  50. PRAVASTATIN [Concomitant]
     Active Substance: PRAVASTATIN
  51. OMEPRAZOLE [Concomitant]
     Active Substance: OMEPRAZOLE
  52. MELOXICAM [Concomitant]
     Active Substance: MELOXICAM
  53. AZITHROMYCIN [Concomitant]
     Active Substance: AZITHROMYCIN
  54. CIPROFLOXACIN [Concomitant]
     Active Substance: CIPROFLOXACIN
  55. METRONIDAZOLE [Concomitant]
     Active Substance: METRONIDAZOLE
  56. PHENAZOPYRIDINE [Concomitant]
     Active Substance: PHENAZOPYRIDINE
  57. SULFAMETHOXAZOLE\TRIMETHOPRIM [Concomitant]
     Active Substance: SULFAMETHOXAZOLE\TRIMETHOPRIM
  58. LEVOFLOXACIN [Concomitant]
     Active Substance: LEVOFLOXACIN
  59. METHYLPREDNISOLONE [Concomitant]
     Active Substance: METHYLPREDNISOLONE
  60. AMOXICILLIN\CLAVULANATE POTASSIUM [Concomitant]
     Active Substance: AMOXICILLIN\CLAVULANATE POTASSIUM
  61. NEVIRAPINE [Concomitant]
     Active Substance: NEVIRAPINE
  62. LAMIVUDINE [Concomitant]
     Active Substance: LAMIVUDINE
  63. METOCLOPRAMIDE [Concomitant]
     Active Substance: METOCLOPRAMIDE
  64. PROZAC [Concomitant]
     Active Substance: FLUOXETINE HYDROCHLORIDE
  65. FLUOXETINE [Concomitant]
     Active Substance: FLUOXETINE HYDROCHLORIDE
  66. EPIPEN [Concomitant]
     Active Substance: EPINEPHRINE
  67. ZANTAC [Concomitant]
     Active Substance: RANITIDINE HYDROCHLORIDE
  68. DULERA [Concomitant]
     Active Substance: FORMOTEROL FUMARATE DIHYDRATE\MOMETASONE FUROATE
  69. CLOBETASOL [Concomitant]
     Active Substance: CLOBETASOL
  70. AMITIZA [Concomitant]
     Active Substance: LUBIPROSTONE
  71. CELEBREX [Concomitant]
     Active Substance: CELECOXIB
  72. NABUMETONE [Concomitant]
     Active Substance: NABUMETONE
  73. SPIRIVA [Concomitant]
     Active Substance: TIOTROPIUM BROMIDE MONOHYDRATE
  74. CORTEF [Concomitant]
     Active Substance: HYDROCORTISONE

REACTIONS (12)
  - Chronic kidney disease [Not Recovered/Not Resolved]
  - Osteoporosis [Not Recovered/Not Resolved]
  - Foot fracture [Not Recovered/Not Resolved]
  - Renal impairment [Not Recovered/Not Resolved]
  - Metabolic syndrome [Not Recovered/Not Resolved]
  - Spinal fracture [Not Recovered/Not Resolved]
  - Pain [Not Recovered/Not Resolved]
  - Emotional distress [Not Recovered/Not Resolved]
  - Anxiety [Not Recovered/Not Resolved]
  - Anhedonia [Not Recovered/Not Resolved]
  - Anaemia [Not Recovered/Not Resolved]
  - Gout [Not Recovered/Not Resolved]

NARRATIVE: CASE EVENT DATE: 20120101
